FAERS Safety Report 20001147 (Version 2)
Quarter: 2021Q4

REPORT INFORMATION
  Report Type: Spontaneous
  Country: US (occurrence: US)
  Receive Date: 20211027
  Receipt Date: 20211028
  Transmission Date: 20220304
  Serious: No
  Sender: FDA-Public Use
  Company Number: NVSC2021US244716

PATIENT

DRUGS (1)
  1. ANECTINE [Suspect]
     Active Substance: SUCCINYLCHOLINE CHLORIDE
     Indication: Product used for unknown indication
     Dosage: 20MG/ML
     Route: 065

REACTIONS (1)
  - Therapeutic response decreased [Unknown]
